FAERS Safety Report 8131498-3 (Version None)
Quarter: 2012Q1

REPORT INFORMATION
  Report Type: 
  Country: None (occurrence: None)
  Receive Date: 20120213
  Receipt Date: 20120209
  Transmission Date: 20120608
  Serious: Yes (Death)
  Sender: FDA-Public Use
  Company Number: AT-JNJFOC-20120201755

PATIENT
  Age: 42 Year
  Sex: Male

DRUGS (3)
  1. RISPERDAL [Suspect]
     Indication: PRODUCT USED FOR UNKNOWN INDICATION
     Route: 065
     Dates: start: 20111217, end: 20111220
  2. RISPERDAL [Suspect]
     Route: 065
     Dates: start: 20111221, end: 20111229
  3. DIAZEPAM [Suspect]
     Indication: PRODUCT USED FOR UNKNOWN INDICATION
     Route: 065
     Dates: start: 20111217, end: 20111229

REACTIONS (1)
  - COMPLETED SUICIDE [None]
